FAERS Safety Report 8295578-4 (Version None)
Quarter: 2012Q2

REPORT INFORMATION
  Report Type: 
  Country: None (occurrence: None)
  Receive Date: 20120413
  Receipt Date: 20120330
  Transmission Date: 20120825
  Serious: Yes (Death)
  Sender: FDA-Public Use
  Company Number: NGX_00966_2012

PATIENT
  Sex: Male
  Weight: 75 kg

DRUGS (3)
  1. LIDOCAINE [Concomitant]
  2. LYRICA [Concomitant]
  3. QUTENZA [Suspect]
     Indication: COMPLEX REGIONAL PAIN SYNDROME
     Dosage: (1 DF [PATCH] APPLIED TO LEGS TOPICAL)
     Route: 061
     Dates: start: 20110527, end: 20110527

REACTIONS (1)
  - PULMONARY EMBOLISM [None]
